FAERS Safety Report 4707210-4 (Version None)
Quarter: 2005Q3

REPORT INFORMATION
  Report Type: 
  Country: None (occurrence: None)
  Receive Date: 20050701
  Receipt Date: 20050701
  Transmission Date: 20060218
  Serious: No
  Sender: FDA-Public Use
  Company Number: None

PATIENT
  Age: 56 Year
  Sex: Female
  Weight: 66.9056 kg

DRUGS (4)
  1. SEROQUEL [Suspect]
     Indication: MAJOR DEPRESSION
     Dosage: 50 MG   QHS   ORAL;  50 MG   BID   ORAL
     Route: 048
     Dates: start: 20040414, end: 20040812
  2. SEROQUEL [Suspect]
     Indication: PANIC DISORDER
     Dosage: 50 MG   QHS   ORAL;  50 MG   BID   ORAL
     Route: 048
     Dates: start: 20040414, end: 20040812
  3. SEROQUEL [Suspect]
     Indication: MAJOR DEPRESSION
     Dosage: 50 MG   QHS   ORAL;  50 MG   BID   ORAL
     Route: 048
     Dates: start: 20040812, end: 20050215
  4. SEROQUEL [Suspect]
     Indication: PANIC DISORDER
     Dosage: 50 MG   QHS   ORAL;  50 MG   BID   ORAL
     Route: 048
     Dates: start: 20040812, end: 20050215

REACTIONS (1)
  - TRANSAMINASES INCREASED [None]
